FAERS Safety Report 10621888 (Version 1)
Quarter: 2014Q4

REPORT INFORMATION
  Report Type: Spontaneous
  Country: US (occurrence: None)
  Receive Date: 20141201
  Receipt Date: 20141201
  Transmission Date: 20150529
  Serious: Yes (Disabling)
  Sender: FDA-Public Use
  Company Number: None

PATIENT
  Age: 76 Year
  Sex: Male
  Weight: 85.28 kg

DRUGS (4)
  1. FISH OIL [Concomitant]
     Active Substance: FISH OIL
  2. NAMENDA XR [Suspect]
     Active Substance: MEMANTINE HYDROCHLORIDE
     Indication: MEMORY IMPAIRMENT
     Dosage: 1 CAPSULE
     Route: 048
     Dates: start: 20141031, end: 20141104
  3. VYTORIN [Concomitant]
     Active Substance: EZETIMIBE\SIMVASTATIN
  4. B -VITAMIN COMPLEX [Concomitant]

REACTIONS (4)
  - Anger [None]
  - Aggression [None]
  - Dizziness [None]
  - Urinary incontinence [None]

NARRATIVE: CASE EVENT DATE: 20141103
